FAERS Safety Report 8724930 (Version 2)
Quarter: 2012Q4

REPORT INFORMATION
  Report Type: 
  Country: JP (occurrence: JP)
  Receive Date: 20120815
  Receipt Date: 20121025
  Transmission Date: 20130627
  Serious: Yes (Other)
  Sender: FDA-Public Use
  Company Number: JP-B.I. PHARMACEUTICALS,INC./RIDGEFIELD-2012-BP-18953YA

PATIENT
  Age: 88 Year
  Sex: Male

DRUGS (6)
  1. HARNAL [Suspect]
     Indication: BENIGN PROSTATIC HYPERPLASIA
     Dosage: 0.2 mg
     Route: 048
     Dates: start: 20110603
  2. AVOLVE [Concomitant]
     Dates: start: 20110615
  3. MUCOSTA (REBAMIPIDE) [Concomitant]
     Dates: start: 20110601
  4. AZOPT (BRINZOLAMIDE) [Concomitant]
  5. SANCOBA (CYANOCOBALAMIN) [Concomitant]
  6. DUOTRAV (TIMOLOL MALEATE, TRAVOPROST) [Concomitant]

REACTIONS (3)
  - Dysphagia [Not Recovered/Not Resolved]
  - Saliva altered [Not Recovered/Not Resolved]
  - Dizziness [None]
